FAERS Safety Report 9151719 (Version 1)
Quarter: 2013Q1

REPORT INFORMATION
  Report Type: Spontaneous
  Country: US (occurrence: US)
  Receive Date: 20130308
  Receipt Date: 20130308
  Transmission Date: 20140127
  Serious: No
  Sender: FDA-Public Use
  Company Number: US-TEVA-389117USA

PATIENT
  Age: 75 Year
  Sex: Male
  Weight: 99.88 kg

DRUGS (3)
  1. QNASL [Suspect]
     Indication: UPPER-AIRWAY COUGH SYNDROME
     Dosage: QD
     Route: 045
     Dates: start: 20130226
  2. SYMBICORT [Concomitant]
     Indication: CHRONIC OBSTRUCTIVE PULMONARY DISEASE
     Dosage: 2 PUFFS BID
  3. SPIRIVA [Concomitant]
     Indication: CHRONIC OBSTRUCTIVE PULMONARY DISEASE
     Dosage: QD

REACTIONS (2)
  - Cough [Recovered/Resolved]
  - Incorrect route of drug administration [Recovered/Resolved]
